FAERS Safety Report 6217603-4 (Version None)
Quarter: 2009Q2

REPORT INFORMATION
  Report Type: 
  Country: None (occurrence: None)
  Receive Date: 20090608
  Receipt Date: 20090402
  Transmission Date: 20091009
  Serious: No
  Sender: FDA-Public Use
  Company Number: A0776858A

PATIENT
  Age: 45 Year
  Sex: Female

DRUGS (14)
  1. WELLBUTRIN XL [Suspect]
     Indication: DEPRESSION
     Dosage: 150MG PER DAY
     Route: 048
     Dates: start: 20090301
  2. PROZAC [Concomitant]
  3. VITAMIN B COMPLEX CAP [Concomitant]
  4. IRON [Concomitant]
  5. MAGNESIUM SULFATE [Concomitant]
  6. POTASSIUM CHLORIDE [Concomitant]
  7. CALCIUM [Concomitant]
  8. VITAMIN D [Concomitant]
  9. VITAMIN B-12 [Concomitant]
  10. VICODIN [Concomitant]
  11. SOMA [Concomitant]
  12. VALIUM [Concomitant]
  13. MACRODANTIN [Concomitant]
  14. IBUPROFEN [Concomitant]

REACTIONS (8)
  - BEDRIDDEN [None]
  - DRUG INEFFECTIVE [None]
  - FATIGUE [None]
  - INSOMNIA [None]
  - MENORRHAGIA [None]
  - PAROSMIA [None]
  - URINARY TRACT INFECTION [None]
  - WEIGHT INCREASED [None]
